FAERS Safety Report 7966898-5 (Version None)
Quarter: 2011Q4

REPORT INFORMATION
  Report Type: 
  Country: None (occurrence: None)
  Receive Date: 20111209
  Receipt Date: 20111205
  Transmission Date: 20120403
  Serious: No
  Sender: FDA-Public Use
  Company Number: US-PFIZER INC-2011296835

PATIENT
  Sex: Female

DRUGS (1)
  1. ALSUMA [Suspect]
     Dosage: UNK

REACTIONS (2)
  - INJECTION SITE URTICARIA [None]
  - INJECTION SITE PRURITUS [None]
